FAERS Safety Report 8794658 (Version 1)
Quarter: 2012Q4

REPORT INFORMATION
  Report Type: 
  Country: US (occurrence: US)
  Receive Date: 20120917
  Receipt Date: 20120917
  Transmission Date: 20130627
  Serious: No
  Sender: FDA-Public Use
  Company Number: US-VERTEX PHARMACEUTICAL INC.-2012-020011

PATIENT
  Age: 54 Year
  Sex: Female
  Weight: 58 kg

DRUGS (15)
  1. VX-950 [Suspect]
     Indication: HEPATITIS C
     Dosage: 750 mg, tid
     Route: 048
  2. PEGASYS [Suspect]
     Indication: HEPATITIS C
     Dosage: 180 ?g, UNK
  3. RIBAVIRIN [Suspect]
     Indication: HEPATITIS C
  4. PREMARIN [Concomitant]
     Dosage: 0625 mg, UNK
  5. HYDROCHLOROTH [Concomitant]
     Dosage: 25 mg, UNK
  6. PREPARATION H                      /00611001/ [Concomitant]
  7. VITAMIN D3 [Concomitant]
     Dosage: 1000 UNK, UNK
  8. FLINTSTONES COMPLETE [Concomitant]
  9. CALCIUM [Concomitant]
     Dosage: 500 mg, UNK
  10. VITAMIN C                          /00008001/ [Concomitant]
     Dosage: 500 mg, UNK
  11. IRON [Concomitant]
     Dosage: 25 mg, UNK
  12. LEVOTHYROXIN [Concomitant]
     Dosage: 100 ?g, UNK
  13. NEUPOGEN [Concomitant]
     Dosage: 480.08 UNK, UNK
  14. AZITHROMYCIN [Concomitant]
     Dosage: 250 mg, qd
  15. AMBIEN [Concomitant]
     Dosage: 5 mg, UNK

REACTIONS (7)
  - White blood cell count decreased [Unknown]
  - Pain [Unknown]
  - Headache [Unknown]
  - Weight decreased [Unknown]
  - Pharyngitis [Unknown]
  - Insomnia [Unknown]
  - Fatigue [Unknown]
